FAERS Safety Report 12235903 (Version 3)
Quarter: 2016Q2

REPORT INFORMATION
  Report Type: Report from Study
  Country: US (occurrence: US)
  Receive Date: 20160404
  Receipt Date: 20160506
  Transmission Date: 20160815
  Serious: Yes (Death, Hospitalization, Other)
  Sender: FDA-Public Use
  Company Number: US-ACTELION-A-US2015-129439

PATIENT
  Age: 73 Year
  Sex: Male
  Weight: 93.42 kg

DRUGS (5)
  1. COUMADIN [Concomitant]
     Active Substance: WARFARIN SODIUM
  2. REVATIO [Concomitant]
     Active Substance: SILDENAFIL CITRATE
  3. AMLODIPINE [Concomitant]
     Active Substance: AMLODIPINE BESYLATE
  4. TRACLEER [Suspect]
     Active Substance: BOSENTAN
     Indication: PULMONARY ARTERIAL HYPERTENSION
     Dosage: UNK
     Route: 048
  5. TYVASO [Suspect]
     Active Substance: TREPROSTINIL
     Indication: PULMONARY ARTERIAL HYPERTENSION
     Dosage: 18-54 MCG (3-9 BREATHS) QID
     Route: 055
     Dates: start: 20130701

REACTIONS (11)
  - Brain operation [Unknown]
  - Cerebrovascular accident [Unknown]
  - Death [Fatal]
  - Lung neoplasm malignant [Unknown]
  - Oedema peripheral [Unknown]
  - Mechanical ventilation [Unknown]
  - Fall [Unknown]
  - Nasopharyngitis [Unknown]
  - Hypersensitivity [Unknown]
  - Seizure [Unknown]
  - Fluid retention [Unknown]

NARRATIVE: CASE EVENT DATE: 201603
